FAERS Safety Report 4851983-7 (Version None)
Quarter: 2005Q4

REPORT INFORMATION
  Report Type: 
  Country: None (occurrence: None)
  Receive Date: 20051213
  Receipt Date: 20051202
  Transmission Date: 20060501
  Serious: Yes (Disabling)
  Sender: FDA-Public Use
  Company Number: 2005AP06297

PATIENT
  Age: 63 Year
  Sex: Female

DRUGS (1)
  1. OMEPRAL [Suspect]
     Indication: GASTROINTESTINAL HAEMORRHAGE
     Route: 048
     Dates: start: 20051108, end: 20051118

REACTIONS (5)
  - BODY TEMPERATURE INCREASED [None]
  - BOWEL SOUNDS ABNORMAL [None]
  - CONVULSION [None]
  - HAEMATEMESIS [None]
  - LOSS OF CONSCIOUSNESS [None]
